FAERS Safety Report 20835742 (Version 1)
Quarter: 2022Q2

REPORT INFORMATION
  Report Type: 
  Country: None (occurrence: None)
  Receive Date: 20220516
  Receipt Date: 20220516
  Transmission Date: 20220720
  Serious: No
  Sender: FDA-Public Use
  Company Number: DE-MLMSERVICE-20211027-3189936-1

PATIENT

DRUGS (3)
  1. MYCOPHENOLATE MOFETIL [Suspect]
     Active Substance: MYCOPHENOLATE MOFETIL
     Dates: end: 2020
  2. CYCLOSPORINE [Suspect]
     Active Substance: CYCLOSPORINE
     Dates: end: 2020
  3. PREDNISOLONE [Suspect]
     Active Substance: PREDNISOLONE
     Dates: end: 2020

REACTIONS (6)
  - Parvovirus B19 infection [None]
  - Haemophagocytic lymphohistiocytosis [None]
  - Atypical haemolytic uraemic syndrome [None]
  - Multiple organ dysfunction syndrome [None]
  - Thrombotic microangiopathy [None]
  - Oral herpes [None]

NARRATIVE: CASE EVENT DATE: 20200101
